FAERS Safety Report 20917930 (Version 1)
Quarter: 2022Q2

REPORT INFORMATION
  Report Type: Report from Study
  Country: US (occurrence: US)
  Receive Date: 20220606
  Receipt Date: 20220606
  Transmission Date: 20220721
  Serious: Yes (Other)
  Sender: FDA-Public Use
  Company Number: US-ABBVIE-22K-163-4421654-00

PATIENT

DRUGS (1)
  1. LUPRON DEPOT [Suspect]
     Active Substance: LEUPROLIDE ACETATE
     Indication: Prostate cancer
     Route: 030

REACTIONS (5)
  - Prostate cancer metastatic [Unknown]
  - Bone cancer [Unknown]
  - Bone cancer [Unknown]
  - Lung neoplasm malignant [Unknown]
  - Gastrointestinal lymphoma [Recovered/Resolved]

NARRATIVE: CASE EVENT DATE: 20190101
